FAERS Safety Report 4866311-0 (Version None)
Quarter: 2005Q4

REPORT INFORMATION
  Report Type: 
  Country: None (occurrence: None)
  Receive Date: 20051227
  Receipt Date: 20051219
  Transmission Date: 20060501
  Serious: Yes (Congenital Anomaly)
  Sender: FDA-Public Use
  Company Number: FR-SANOFI-SYNTHELABO-A02200503368

PATIENT
  Sex: Male

DRUGS (2)
  1. STILNOX [Suspect]
     Indication: DRUG EXPOSURE DURING PREGNANCY
     Dosage: UNK
     Route: 064
  2. IMOVANE [Suspect]
     Indication: DRUG EXPOSURE DURING PREGNANCY
     Dosage: UNK
     Route: 064

REACTIONS (5)
  - CATARACT CONGENITAL [None]
  - CLEFT LIP AND PALATE [None]
  - CONGENITAL NEUROLOGICAL DISORDER [None]
  - DRUG EXPOSURE DURING PREGNANCY [None]
  - PYELECTASIA [None]
